FAERS Safety Report 5290685-2 (Version None)
Quarter: 2007Q2

REPORT INFORMATION
  Report Type: 
  Country: None (occurrence: None)
  Receive Date: 20070405
  Receipt Date: 20070405
  Transmission Date: 20071010
  Serious: Yes (Hospitalization)
  Sender: FDA-Public Use
  Company Number: None

PATIENT
  Sex: Male
  Weight: 71.4 kg

DRUGS (10)
  1. MYCOPHENOLIC ACID [Suspect]
     Indication: PROPHYLAXIS AGAINST GRAFT VERSUS HOST DISEASE
     Dosage: 360MG PO 2X / DAY
     Route: 048
     Dates: start: 20060509, end: 20060807
  2. RANITIDINE [Suspect]
     Indication: PROPHYLAXIS AGAINST GASTROINTESTINAL ULCER
     Dosage: 150MG  PO  2X /DAY
     Route: 048
     Dates: start: 20060509, end: 20060807
  3. SULFAMETHOXAZOLE + TRIMETHOPRIM [Concomitant]
  4. LEVOTHYROXINE SODIUM [Concomitant]
  5. LAMIVUDINE [Concomitant]
  6. PREDNISONE TAB [Concomitant]
  7. MULTI-VITAMIN [Concomitant]
  8. METHADONE HCL [Concomitant]
  9. DOCUSATE [Concomitant]
  10. TACROLIMUS [Concomitant]

REACTIONS (1)
  - PANCYTOPENIA [None]
